FAERS Safety Report 9168414 (Version 1)
Quarter: 2013Q1

REPORT INFORMATION
  Report Type: Spontaneous
  Country: BR (occurrence: None)
  Receive Date: 20130307
  Receipt Date: 20130307
  Transmission Date: 20140127
  Serious: Yes (Hospitalization, Other)
  Sender: FDA-Public Use
  Company Number: DAV-AE-HCTZ-13-01

PATIENT
  Age: 18 Year
  Sex: Male

DRUGS (2)
  1. HYDROCHLOROTHIAZIDE [Suspect]
     Indication: INTENTIONAL OVERDOSE
     Route: 048
  2. AMLODIPINE [Suspect]
     Indication: INTENTIONAL OVERDOSE
     Route: 048

REACTIONS (21)
  - Intentional overdose [None]
  - Suicide attempt [None]
  - Dizziness [None]
  - Vertigo [None]
  - Headache [None]
  - Paraesthesia [None]
  - Hypotension [None]
  - Bradycardia [None]
  - Tachypnoea [None]
  - Oxygen saturation decreased [None]
  - Poor peripheral circulation [None]
  - Electrocardiogram ST segment depression [None]
  - Arrhythmia supraventricular [None]
  - Extrasystoles [None]
  - Electrocardiogram P wave abnormal [None]
  - Electrocardiogram PR prolongation [None]
  - Atrioventricular block [None]
  - Hyperglycaemia [None]
  - Anuria [None]
  - Acute pulmonary oedema [None]
  - Bundle branch block left [None]
